FAERS Safety Report 8309048-8 (Version None)
Quarter: 2012Q2

REPORT INFORMATION
  Report Type: 
  Country: None (occurrence: None)
  Receive Date: 20120424
  Receipt Date: 20120416
  Transmission Date: 20120825
  Serious: Yes (Hospitalization)
  Sender: FDA-Public Use
  Company Number: CO-ELI_LILLY_AND_COMPANY-CO201204005582

PATIENT
  Age: 46 Year
  Sex: Male

DRUGS (8)
  1. HUMALOG MIX 75/25 [Suspect]
     Dosage: 45 U, EACH MORNING
     Route: 058
     Dates: start: 20120217, end: 20120304
  2. LOVASTATIN [Concomitant]
     Dosage: UNK
  3. OMEPRAZOLE [Concomitant]
     Dosage: UNK
  4. AMLODIPINE [Concomitant]
     Dosage: UNK
  5. HUMALOG MIX 75/25 [Suspect]
     Dosage: 20 U, EACH EVENING
     Route: 058
     Dates: start: 20120217, end: 20120304
  6. ACETAMINOPHEN [Concomitant]
     Dosage: UNK
  7. FUROSEMIDE [Concomitant]
     Dosage: UNK
  8. METOPROLOL TARTRATE [Concomitant]
     Dosage: UNK

REACTIONS (1)
  - INFARCTION [None]
